FAERS Safety Report 6852066-7 (Version None)
Quarter: 2010Q3

REPORT INFORMATION
  Report Type: 
  Country: None (occurrence: None)
  Receive Date: 20100717
  Receipt Date: 20081028
  Transmission Date: 20110219
  Serious: No
  Sender: FDA-Public Use
  Company Number: US-PFIZER INC-2007092332

PATIENT
  Sex: Female
  Weight: 62.7 kg

DRUGS (6)
  1. CHANTIX [Suspect]
     Indication: SMOKING CESSATION THERAPY
     Route: 048
     Dates: start: 20071001
  2. PREMARIN [Concomitant]
  3. SYNTHROID [Concomitant]
  4. ACETYLSALICYLIC ACID [Concomitant]
  5. VITAMINS [Concomitant]
  6. ANTIINFLAMMATORY/ANTIRHEUMATIC PRODUCTS [Concomitant]

REACTIONS (1)
  - TOBACCO USER [None]
